FAERS Safety Report 6216526-4 (Version None)
Quarter: 2009Q2

REPORT INFORMATION
  Report Type: 
  Country: None (occurrence: None)
  Receive Date: 20090603
  Receipt Date: 20090603
  Transmission Date: 20091009
  Serious: Yes (Hospitalization)
  Sender: FDA-Public Use
  Company Number: None

PATIENT
  Age: 65 Year
  Sex: Male
  Weight: 92.1 kg

DRUGS (1)
  1. SIMVASTATIN [Suspect]
     Dosage: 80MG HS PO
     Route: 048
     Dates: start: 20080811, end: 20090129

REACTIONS (7)
  - ALANINE AMINOTRANSFERASE INCREASED [None]
  - ASPARTATE AMINOTRANSFERASE INCREASED [None]
  - BLOOD CREATINE PHOSPHOKINASE INCREASED [None]
  - CHROMATURIA [None]
  - FATIGUE [None]
  - MYALGIA [None]
  - URINE ODOUR ABNORMAL [None]
